FAERS Safety Report 5664337-0 (Version None)
Quarter: 2008Q1

REPORT INFORMATION
  Report Type: 
  Country: None (occurrence: None)
  Receive Date: 20080311
  Receipt Date: 20080311
  Transmission Date: 20080703
  Serious: No
  Sender: FDA-Public Use
  Company Number: None

PATIENT
  Age: 33 Year
  Sex: Male
  Weight: 73.4827 kg

DRUGS (2)
  1. LEVAQUIN [Suspect]
     Indication: BACTERIAL INFECTION
     Dosage: 5 TABLES 1 DAY PO
     Route: 048
     Dates: start: 20080303, end: 20080307
  2. LEVAQUIN [Suspect]
     Dosage: 1 BAG 1 DAY IV DRIP
     Route: 041
     Dates: start: 20080302, end: 20080302

REACTIONS (1)
  - MUSCLE TWITCHING [None]
